FAERS Safety Report 19721356 (Version 1)
Quarter: 2021Q3

REPORT INFORMATION
  Report Type: Spontaneous
  Country: DE (occurrence: DE)
  Receive Date: 20210819
  Receipt Date: 20210819
  Transmission Date: 20211014
  Serious: Yes (Hospitalization, Other)
  Sender: FDA-Public Use
  Company Number: DE-BAYER-2021-194917

PATIENT
  Age: 27 Year
  Sex: Female
  Weight: 85 kg

DRUGS (1)
  1. JAYDESS [Suspect]
     Active Substance: LEVONORGESTREL
     Indication: CONTRACEPTION
     Dosage: 14 ?G, CONT
     Route: 015
     Dates: start: 20200709, end: 20210716

REACTIONS (5)
  - Haemorrhage in pregnancy [Recovered/Resolved]
  - Drug ineffective [None]
  - Ectopic pregnancy with contraceptive device [Recovered/Resolved]
  - Abdominal pain lower [Recovered/Resolved]
  - Pelvic haemorrhage [Recovered/Resolved]

NARRATIVE: CASE EVENT DATE: 20210714
